FAERS Safety Report 21744776 (Version 5)
Quarter: 2023Q1

REPORT INFORMATION
  Report Type: Other
  Country: GB (occurrence: GB)
  Receive Date: 20221219
  Receipt Date: 20230202
  Transmission Date: 20230418
  Serious: Yes (Hospitalization, Other)
  Sender: FDA-Public Use
  Company Number: None

PATIENT
  Age: 55 Year
  Sex: Female
  Weight: 62 kg

DRUGS (13)
  1. IBUPROFEN [Suspect]
     Active Substance: IBUPROFEN
     Indication: Arthralgia
     Dosage: UNK
     Route: 065
  2. IBUPROFEN [Suspect]
     Active Substance: IBUPROFEN
     Indication: Mobility decreased
     Dosage: 400 MG, TID (30 DAYS OR 1 MONTH)
     Route: 048
     Dates: start: 20031202, end: 200401
  3. IBUPROFEN [Suspect]
     Active Substance: IBUPROFEN
     Dosage: 400 MG, TID (30 DAYS OR 1 MONTH)
     Route: 048
     Dates: start: 200312, end: 200401
  4. VIREAD [Suspect]
     Active Substance: TENOFOVIR DISOPROXIL FUMARATE
     Indication: HIV infection
     Dosage: 300 MG, QD, TABLET (330 DAYS OR 11 MONTHS)
     Route: 048
     Dates: start: 200302, end: 200401
  5. VIREAD [Suspect]
     Active Substance: TENOFOVIR DISOPROXIL FUMARATE
     Dosage: 100 MG, QD (DOSE: 300 MG OD)
     Route: 048
     Dates: start: 200401
  6. VIREAD [Suspect]
     Active Substance: TENOFOVIR DISOPROXIL FUMARATE
     Dosage: 100 MG, QD, TABLET
     Route: 048
     Dates: start: 200401
  7. BACTRIM [Concomitant]
     Active Substance: SULFAMETHOXAZOLE\TRIMETHOPRIM
     Indication: Product used for unknown indication
     Dosage: 960 MG DAILY (STOP DATE: JAN 2004)
     Route: 048
  8. KALETRA [Concomitant]
     Active Substance: LOPINAVIR\RITONAVIR
     Indication: HIV infection
     Dosage: 3 DOSAGE FORM, BID, EVERY 12 HOURS
     Route: 048
     Dates: start: 200302, end: 200401
  9. SULFAMETHOXAZOLE\TRIMETHOPRIM [Concomitant]
     Active Substance: SULFAMETHOXAZOLE\TRIMETHOPRIM
     Indication: Product used for unknown indication
     Dosage: 960 MG, QD (STOP DATE: JAN 2004)
     Route: 048
  10. ABACAVIR [Concomitant]
     Active Substance: ABACAVIR
     Indication: HIV infection
     Dosage: 600 MG, QD (330 DAYS OR 11 MONTHS)
     Route: 048
     Dates: start: 200302, end: 200401
  11. FLUCONAZOLE [Concomitant]
     Active Substance: FLUCONAZOLE
     Indication: Product used for unknown indication
     Dosage: 200 MG, QD (STOP DATE: JAN 2004)
     Route: 048
  12. ATENOLOL [Concomitant]
     Active Substance: ATENOLOL
     Indication: Product used for unknown indication
     Dosage: 50 MG, QD
     Route: 048
  13. ATENOLOL [Concomitant]
     Active Substance: ATENOLOL
     Dosage: 50 MG, QD
     Route: 048

REACTIONS (5)
  - Renal tubular acidosis [Recovered/Resolved]
  - Metabolic acidosis [Recovered/Resolved]
  - Proteinuria [Unknown]
  - Acute kidney injury [Recovered/Resolved]
  - Off label use [Unknown]

NARRATIVE: CASE EVENT DATE: 20040123
